FAERS Safety Report 5167733-3 (Version None)
Quarter: 2006Q4

REPORT INFORMATION
  Report Type: 
  Country: None (occurrence: None)
  Receive Date: 20061204
  Receipt Date: 20061204
  Transmission Date: 20070319
  Serious: Yes (Other)
  Sender: FDA-Public Use
  Company Number: None

PATIENT
  Age: 65 Year
  Sex: Female

DRUGS (1)
  1. BYETTA [Suspect]
     Dosage: 5 MG
     Dates: start: 20061001, end: 20061101

REACTIONS (3)
  - CHEST PAIN [None]
  - MUSCLE SPASMS [None]
  - PAIN IN EXTREMITY [None]
